FAERS Safety Report 8334451-X (Version None)
Quarter: 2012Q2

REPORT INFORMATION
  Report Type: 
  Country: None (occurrence: None)
  Receive Date: 20120503
  Receipt Date: 20120424
  Transmission Date: 20120825
  Serious: Yes (Hospitalization, Other)
  Sender: FDA-Public Use
  Company Number: TW-PFIZER INC-2012103594

PATIENT
  Age: 66 Year
  Sex: Female

DRUGS (2)
  1. DOCETAXEL [Concomitant]
     Indication: BREAST CANCER
     Dosage: UNK
  2. CISPLATIN [Suspect]
     Indication: BREAST CANCER
     Dosage: UNK

REACTIONS (3)
  - CONVULSION [None]
  - COMA [None]
  - HYPONATRAEMIA [None]
